FAERS Safety Report 7927881-9 (Version None)
Quarter: 2011Q4

REPORT INFORMATION
  Report Type: 
  Country: None (occurrence: None)
  Receive Date: 20111118
  Receipt Date: 20111115
  Transmission Date: 20120403
  Serious: Yes (Death, Hospitalization)
  Sender: FDA-Public Use
  Company Number: JP-PFIZER INC-2011260206

PATIENT
  Age: 77 Year
  Sex: Male

DRUGS (1)
  1. CABERGOLINE [Suspect]
     Indication: PARKINSON'S DISEASE
     Dosage: 2 MG, DAILY
     Dates: end: 20101111

REACTIONS (2)
  - PLEURAL FIBROSIS [None]
  - PULMONARY FIBROSIS [None]
